FAERS Safety Report 7996503-3 (Version None)
Quarter: 2011Q4

REPORT INFORMATION
  Report Type: 
  Country: None (occurrence: None)
  Receive Date: 20111220
  Receipt Date: 20111216
  Transmission Date: 20120403
  Serious: Yes (Death)
  Sender: FDA-Public Use
  Company Number: US-ASTRAZENECA-2011SE76017

PATIENT
  Age: 14 Year
  Sex: Male

DRUGS (12)
  1. ARIPIPRAZOLE [Suspect]
     Route: 048
  2. DIPHENHYDRAMINE HCL [Suspect]
     Route: 048
  3. MELOXICAM [Suspect]
     Route: 048
  4. PENICILLIN [Suspect]
     Route: 048
  5. LISDEXAMFETAMINE DIMESYLATE [Suspect]
     Route: 048
  6. CLONIDINE [Suspect]
     Route: 048
  7. QUETIAPINE [Suspect]
     Route: 048
  8. MORPHINE [Suspect]
  9. VALPROIC ACID [Suspect]
     Route: 048
  10. CODEINE SULFATE [Suspect]
     Route: 048
  11. LAXATIVE [Suspect]
     Route: 048
  12. SERTRALINE HYDROCHLORIDE [Suspect]

REACTIONS (2)
  - CARDIO-RESPIRATORY ARREST [None]
  - TOXICITY TO VARIOUS AGENTS [None]
